FAERS Safety Report 8594081-1 (Version None)
Quarter: 2012Q3

REPORT INFORMATION
  Report Type: 
  Country: None (occurrence: None)
  Receive Date: 20120814
  Receipt Date: 20120731
  Transmission Date: 20120928
  Serious: Yes (Other)
  Sender: FDA-Public Use
  Company Number: US-WATSON-2012-13570

PATIENT
  Age: 66 Year
  Sex: Female

DRUGS (2)
  1. PREDNISONE TAB [Suspect]
     Indication: PRODUCT USED FOR UNKNOWN INDICATION
     Dosage: 1 DF QD
     Route: 048
  2. EXCEDRIN EXTRA STRENGTH TABLETS [Suspect]
     Indication: SINUS HEADACHE
     Dosage: 1 DF, QD
     Route: 048
     Dates: start: 19800101

REACTIONS (2)
  - PALPITATIONS [None]
  - HYPERSENSITIVITY [None]
